FAERS Safety Report 24658090 (Version 5)
Quarter: 2025Q4

REPORT INFORMATION
  Report Type: Report from Study
  Country: US (occurrence: None)
  Receive Date: 20241125
  Receipt Date: 20251120
  Transmission Date: 20260117
  Serious: Yes (Other)
  Sender: UCB
  Company Number: US-UCBSA-2024060070

PATIENT
  Age: 12 Year
  Weight: 34.9 kg

DRUGS (16)
  1. FENFLURAMINE [Suspect]
     Active Substance: FENFLURAMINE
     Indication: Severe myoclonic epilepsy of infancy
     Dosage: 8.8 MILLIGRAM/DAY
  2. FENFLURAMINE [Suspect]
     Active Substance: FENFLURAMINE
     Dosage: 9.9 MILLIGRAM, ONCE DAILY (QD)
  3. FENFLURAMINE [Suspect]
     Active Substance: FENFLURAMINE
     Dosage: 19.8 MILLIGRAM PER DAY
  4. FENFLURAMINE [Suspect]
     Active Substance: FENFLURAMINE
     Dosage: 4.5 MILLIGRAM, 2X/DAY (BID)
  5. ACETAMINOPHEN [Concomitant]
     Active Substance: ACETAMINOPHEN
     Indication: Product used for unknown indication
     Dosage: TAKE 10.5 MILLILITER BY ORAL ROUTE EVERY 6 HOURS AS NEEDED
  6. CETIRIZINE HCL [Concomitant]
     Active Substance: CETIRIZINE HYDROCHLORIDE
     Indication: Product used for unknown indication
     Dosage: 10 MILLIGRAM
  7. CLOBAZAM [Concomitant]
     Active Substance: CLOBAZAM
     Indication: Product used for unknown indication
     Dosage: 1.5 TAB IN AM, 1.5 TAB AT NIGHT
  8. DIACOMIT [Concomitant]
     Active Substance: STIRIPENTOL
     Indication: Product used for unknown indication
     Dosage: TAKE 1 PACKET IN 10-20 ML OF WATER OR JUICE 2 TIMES EVERY D
  9. DIASTAT ACUDIAL [Concomitant]
     Active Substance: DIAZEPAM
     Indication: Product used for unknown indication
     Dosage: INJECT 5 MILLIGRAM BY RECTAL ROUTE ONCE AS NEEDED FOR PROH
  10. DIVALPROEX SODIUM [Concomitant]
     Active Substance: DIVALPROEX SODIUM
     Indication: Product used for unknown indication
     Dosage: GIVE ^MARELI^ 4 CAPSULES BY MOUTH TWICE DAIL)
  11. EPIDIOLEX [Concomitant]
     Active Substance: CANNABIDIOL
     Indication: Product used for unknown indication
     Dosage: TAKE 3 MIS BY ORAL ROUTE 2 TIMES EVERY DAY
  12. FLUOCINOLONE ACETONIDE [Concomitant]
     Active Substance: FLUOCINOLONE ACETONIDE
     Indication: Product used for unknown indication
     Dosage: APPLY BY TOPICAL ROUTE 2- 3 TIMES EVERY DAY A THIN LAYER TO
  13. FLUTICASONE PROPIONATE [Concomitant]
     Active Substance: FLUTICASONE PROPIONATE
     Indication: Product used for unknown indication
     Dosage: SPRAY 1 - 2 SPRAY BY INTRANASAL ROUTE EVERY DAY IN EACH NC
  14. GLYCOPYRROLATE [Concomitant]
     Active Substance: GLYCOPYRROLATE
     Indication: Product used for unknown indication
     Dosage: MARELI^ 2 ML BY MOUTH THREE TIMES DAILY,
  15. IBUPROFEN [Concomitant]
     Active Substance: IBUPROFEN
     Indication: Product used for unknown indication
     Dosage: 13.5 MILLILITER EVERY 6-8 HOURS AS NEEDE
  16. VITAMIN D3 [Concomitant]
     Active Substance: CHOLECALCIFEROL
     Indication: Product used for unknown indication
     Dosage: 10 MILLILITER, ONCE DAILY (QD)

REACTIONS (1)
  - Tricuspid valve incompetence [Unknown]
